FAERS Safety Report 10662549 (Version 3)
Quarter: 2015Q1

REPORT INFORMATION
  Report Type: Report from Study
  Country: US (occurrence: US)
  Receive Date: 20141218
  Receipt Date: 20150318
  Transmission Date: 20150720
  Serious: Yes (Death, Hospitalization, Other)
  Sender: FDA-Public Use
  Company Number: US-SANOFI-AVENTIS-2012SA093684

PATIENT
  Age: 65 Year
  Sex: Female

DRUGS (1)
  1. AUBAGIO [Suspect]
     Active Substance: TERIFLUNOMIDE
     Indication: MULTIPLE SCLEROSIS
     Route: 048
     Dates: start: 20121121, end: 20141103

REACTIONS (13)
  - Intestinal ischaemia [Fatal]
  - Neoplasm skin [Unknown]
  - Cellulitis [Unknown]
  - Pancreatic disorder [Unknown]
  - Aortic aneurysm [Unknown]
  - Feeding disorder [Unknown]
  - Nephrolithiasis [Unknown]
  - Weight decreased [Unknown]
  - Alopecia [Not Recovered/Not Resolved]
  - Pneumonia [Unknown]
  - Paraesthesia [Unknown]
  - Cholelithiasis [Unknown]
  - Rash pruritic [Unknown]

NARRATIVE: CASE EVENT DATE: 201211
